FAERS Safety Report 9914359 (Version 2)
Quarter: 2014Q2

REPORT INFORMATION
  Report Type: Spontaneous
  Country: GB (occurrence: GB)
  Receive Date: 20140220
  Receipt Date: 20140408
  Transmission Date: 20141212
  Serious: Yes (Life-Threatening, Hospitalization, Disabling, Other)
  Sender: FDA-Public Use
  Company Number: GB-ELI_LILLY_AND_COMPANY-GB201402003077

PATIENT
  Age: 69 Year
  Sex: Male
  Weight: 74 kg

DRUGS (12)
  1. OLANZAPINE [Suspect]
     Indication: PRODUCT USED FOR UNKNOWN INDICATION
     Dosage: 10 MG, QD
     Route: 048
     Dates: start: 2012
  2. EPILIM [Suspect]
     Indication: MOOD ALTERED
     Dosage: 400 MG, BID
     Route: 048
     Dates: start: 2012
  3. MIRTAZAPINE [Suspect]
     Indication: DEMENTIA
     Dosage: 45 MG, UNK
     Route: 048
     Dates: start: 2012
  4. CLONAZEPAM [Suspect]
     Indication: AGGRESSION
     Dosage: 1 MG, QD
     Route: 048
     Dates: start: 2012
  5. OMEPRAZOLE [Concomitant]
     Dosage: 40 MG, QD
  6. ATORVASTATIN [Concomitant]
     Dosage: 40 MG, QD
  7. FYBOGEL MEBEVERINE [Concomitant]
     Dosage: 1 DF, QD
  8. ALFUZOSIN HYDROCHLORIDE [Concomitant]
     Dosage: 10 MG, QD
  9. ISOSORBIDE MONONITRATE [Concomitant]
     Dosage: 60 MG, QD
  10. IVABRADINE [Concomitant]
     Dosage: 5 MG, BID
  11. CLOPIDOGREL [Concomitant]
     Dosage: 75 MG, QD
  12. ASPIRIN [Concomitant]
     Dosage: 75 MG, QD

REACTIONS (4)
  - Hyponatraemia [Recovered/Resolved]
  - Inappropriate antidiuretic hormone secretion [Unknown]
  - Dehydration [Recovered/Resolved]
  - Convulsion [Recovered/Resolved]
